FAERS Safety Report 8833605 (Version 1)
Quarter: 2012Q4

REPORT INFORMATION
  Report Type: Report from Study
  Country: IT (occurrence: IT)
  Receive Date: 20121010
  Receipt Date: 20121010
  Transmission Date: 20130627
  Serious: Yes (Hospitalization)
  Sender: FDA-Public Use
  Company Number: IT-ROCHE-784855

PATIENT
  Age: 45 Year
  Sex: Male

DRUGS (1)
  1. MABTHERA [Suspect]
     Indication: NON-HODGKIN^S LYMPHOMA
     Dosage: FREQUENCY: CYCLE
     Route: 042
     Dates: start: 20110126, end: 20110406

REACTIONS (2)
  - Pyrexia [Recovering/Resolving]
  - General physical health deterioration [Recovering/Resolving]
